FAERS Safety Report 24462289 (Version 2)
Quarter: 2025Q4

REPORT INFORMATION
  Report Type: Spontaneous
  Country: US (occurrence: None)
  Receive Date: 20241018
  Receipt Date: 20251030
  Transmission Date: 20260117
  Serious: No
  Sender: UCB
  Company Number: US-UCBSA-2024040974

PATIENT
  Age: 52 Year
  Weight: 83.9 kg

DRUGS (1)
  1. BIMZELX [Suspect]
     Active Substance: BIMEKIZUMAB-BKZX
     Indication: Psoriasis
     Dosage: 320 MILLIGRAM, EV 4 WEEKS

REACTIONS (2)
  - Oral candidiasis [Unknown]
  - Product use issue [Unknown]
